FAERS Safety Report 11874508 (Version 1)
Quarter: 2015Q4

REPORT INFORMATION
  Report Type: Spontaneous
  Country: US (occurrence: None)
  Receive Date: 20151228
  Receipt Date: 20151228
  Transmission Date: 20160305
  Serious: Yes (Disabling)
  Sender: FDA-Public Use
  Company Number: None

PATIENT
  Age: 27 Year
  Sex: Female
  Weight: 49.9 kg

DRUGS (3)
  1. CLARITIN [Concomitant]
     Active Substance: LORATADINE
  2. FLONASE [Concomitant]
     Active Substance: FLUTICASONE PROPIONATE
  3. MINOCYCLINE [Suspect]
     Active Substance: MINOCYCLINE\MINOCYCLINE HYDROCHLORIDE
     Indication: ACNE CYSTIC
     Route: 048
     Dates: start: 20140901, end: 20150415

REACTIONS (2)
  - Lupus-like syndrome [None]
  - Idiopathic urticaria [None]

NARRATIVE: CASE EVENT DATE: 20141001
